FAERS Safety Report 21817330 (Version 1)
Quarter: 2023Q1

REPORT INFORMATION
  Report Type: Spontaneous
  Country: SE (occurrence: SE)
  Receive Date: 20230104
  Receipt Date: 20230104
  Transmission Date: 20230418
  Serious: Yes (Other)
  Sender: FDA-Public Use
  Company Number: None

PATIENT
  Age: 12 Year
  Sex: Female

DRUGS (1)
  1. LISDEXAMFETAMINE DIMESYLATE [Suspect]
     Active Substance: LISDEXAMFETAMINE DIMESYLATE
     Indication: Product used for unknown indication
     Dosage: 40 MILLIGRAM, QD
     Route: 048
     Dates: start: 2019, end: 2022

REACTIONS (5)
  - Thinking abnormal [Not Recovered/Not Resolved]
  - Excessive exercise [Not Recovered/Not Resolved]
  - Speech disorder [Recovering/Resolving]
  - Emotional poverty [Not Recovered/Not Resolved]
  - Social anxiety disorder [Not Recovered/Not Resolved]

NARRATIVE: CASE EVENT DATE: 20200101
